FAERS Safety Report 7946212-1 (Version None)
Quarter: 2011Q4

REPORT INFORMATION
  Report Type: 
  Country: None (occurrence: None)
  Receive Date: 20111123
  Receipt Date: 20111121
  Transmission Date: 20120403
  Serious: Yes (Life-Threatening)
  Sender: FDA-Public Use
  Company Number: 2011SP054323

PATIENT
  Age: 57 Year
  Sex: Female
  Weight: 82.5 kg

DRUGS (6)
  1. DEXAMETHASONE [Suspect]
     Dates: start: 20111012, end: 20111012
  2. OXALIPLATIN [Suspect]
     Dosage: 220 MG;QD
     Dates: start: 20111012, end: 20111012
  3. CAPECITABINE [Concomitant]
  4. LORATADINE [Suspect]
     Dosage: 10 MG
     Dates: start: 20111012, end: 20111012
  5. HYDROCORTISONE [Suspect]
     Dosage: 100 MG
     Dates: start: 20111012, end: 20111012
  6. GRANISETRON [Suspect]
     Dosage: 2 MG
     Dates: start: 20111012, end: 20111012

REACTIONS (6)
  - CHEST DISCOMFORT [None]
  - DYSPNOEA [None]
  - BLOOD PRESSURE INCREASED [None]
  - INFUSION RELATED REACTION [None]
  - WHEEZING [None]
  - ELECTROCARDIOGRAM T WAVE ABNORMAL [None]
